FAERS Safety Report 6432344-6 (Version None)
Quarter: 2009Q4

REPORT INFORMATION
  Report Type: 
  Country: None (occurrence: None)
  Receive Date: 20091109
  Receipt Date: 20091027
  Transmission Date: 20100525
  Serious: Yes (Hospitalization)
  Sender: FDA-Public Use
  Company Number: US-BAYER-200918358NA

PATIENT
  Age: 36 Year
  Sex: Male

DRUGS (14)
  1. CAMPATH [Suspect]
     Indication: MULTIPLE SCLEROSIS
     Dosage: TOTAL DAILY DOSE: 24 MG
     Route: 042
     Dates: start: 20090217, end: 20090221
  2. SOLU-MEDROL [Concomitant]
     Dosage: 5 DAYS AT HOME
     Dates: start: 20070101, end: 20080101
  3. SOLU-MEDROL [Concomitant]
     Dates: start: 20090329, end: 20090402
  4. AVONEX [Concomitant]
  5. IMMUNE GLOBULIN INTRAVENOUS (HUMAN) [Concomitant]
     Dates: start: 20090301, end: 20090401
  6. ALPRAZOLAM [Concomitant]
     Dates: start: 20070801
  7. BACLOFEN [Concomitant]
  8. PROVIGIL [Concomitant]
  9. TYLENOL [Concomitant]
  10. BENADRYL [Concomitant]
  11. PROPRANOLOL [Concomitant]
  12. VITAMIN D [Concomitant]
  13. MOTRIN [Concomitant]
  14. WELLBUTRIN [Concomitant]

REACTIONS (1)
  - MULTIPLE SCLEROSIS RELAPSE [None]
